FAERS Safety Report 14616462 (Version 2)
Quarter: 2018Q2

REPORT INFORMATION
  Report Type: Spontaneous
  Country: DE (occurrence: DE)
  Receive Date: 20180309
  Receipt Date: 20180424
  Transmission Date: 20180711
  Serious: Yes (Death, Other)
  Sender: FDA-Public Use
  Company Number: DE-SUN PHARMACEUTICAL INDUSTRIES LTD-2017RR-160020

PATIENT
  Age: 41 Year
  Sex: Male

DRUGS (4)
  1. OLANZAPINE. [Suspect]
     Active Substance: OLANZAPINE
     Indication: PRODUCT USED FOR UNKNOWN INDICATION
     Route: 065
  2. METHAMPHETAMINE [Concomitant]
     Active Substance: METHAMPHETAMINE
     Indication: PRODUCT USED FOR UNKNOWN INDICATION
     Dosage: UNK ()
     Route: 065
  3. 5F-ADB [Interacting]
     Active Substance: 5-FLUORO-ADB, (+/-)-
     Indication: PRODUCT USED FOR UNKNOWN INDICATION
     Route: 065
  4. TRIMIPRAMINE [Interacting]
     Active Substance: TRIMIPRAMINE
     Indication: PRODUCT USED FOR UNKNOWN INDICATION
     Route: 065

REACTIONS (11)
  - Pulmonary haemorrhage [Fatal]
  - Aspiration [Unknown]
  - Pulmonary oedema [Fatal]
  - Skin haemorrhage [Fatal]
  - Drug interaction [Unknown]
  - Visceral congestion [Fatal]
  - Eyelid bleeding [Fatal]
  - Coma [Unknown]
  - Petechiae [Fatal]
  - Brain oedema [Fatal]
  - Death [Fatal]
